FAERS Safety Report 8336977-1 (Version None)
Quarter: 2012Q2

REPORT INFORMATION
  Report Type: 
  Country: None (occurrence: None)
  Receive Date: 20120504
  Receipt Date: 20120502
  Transmission Date: 20120825
  Serious: Yes (Other)
  Sender: FDA-Public Use
  Company Number: GXKR2012DE001560

PATIENT
  Age: 75 Year
  Sex: Male
  Weight: 83 kg

DRUGS (4)
  1. SIMVASTATIN [Suspect]
     Indication: HYPERCHOLESTEROLAEMIA
     Dosage: 20 MG, QD
     Route: 048
     Dates: start: 20120201
  2. IRBESARTAN [Concomitant]
     Indication: HYPERTENSION
     Dosage: 75 MG/DAY
     Route: 048
  3. BETAXOLOL [Concomitant]
     Indication: HYPERTENSION
     Dosage: 10 MG/DAY
     Route: 048
  4. SIMVASTATIN [Suspect]
     Dosage: 40 MG, QD
     Route: 048
     Dates: start: 20110301

REACTIONS (3)
  - COLD SWEAT [None]
  - BLOOD PRESSURE INCREASED [None]
  - FATIGUE [None]
